FAERS Safety Report 15714734 (Version 2)
Quarter: 2019Q3

REPORT INFORMATION
  Report Type: Spontaneous
  Country: CA (occurrence: CA)
  Receive Date: 20181212
  Receipt Date: 20190909
  Transmission Date: 20191004
  Serious: Yes (Other)
  Sender: FDA-Public Use
  Company Number: CA-CELLTRION INC.-2018CA024551

PATIENT

DRUGS (4)
  1. MELOXICAM. [Concomitant]
     Active Substance: MELOXICAM
     Indication: ANKYLOSING SPONDYLITIS
     Dosage: 15 MG, 2 EVERY 1 DAY (S)
     Route: 065
  2. VOLTAREN [Suspect]
     Active Substance: DICLOFENAC SODIUM
     Indication: PRODUCT USED FOR UNKNOWN INDICATION
     Dosage: 75 MG, 2 EVERY 1 DAY (S)
     Route: 065
  3. INFLIXIMAB PFIZER (UNKNOWN) [Suspect]
     Active Substance: INFLIXIMAB
     Indication: ANKYLOSING SPONDYLITIS
     Dosage: 300 MG, 2 EVERY 1 WEEK (S)
     Route: 042
  4. MEFENAMIC ACID. [Suspect]
     Active Substance: MEFENAMIC ACID
     Indication: PRODUCT USED FOR UNKNOWN INDICATION
     Dosage: 400 MG, 4 EVERY 1 DAY (S)
     Route: 065

REACTIONS (7)
  - Inflammation [Unknown]
  - Musculoskeletal stiffness [Unknown]
  - Ankylosing spondylitis [Unknown]
  - Drug ineffective [Unknown]
  - C-reactive protein increased [Unknown]
  - Pain [Unknown]
  - Product use issue [Unknown]
